FAERS Safety Report 4870999-8 (Version None)
Quarter: 2005Q4

REPORT INFORMATION
  Report Type: 
  Country: None (occurrence: None)
  Receive Date: 20051115
  Receipt Date: 20050829
  Transmission Date: 20060501
  Serious: Yes (Other)
  Sender: FDA-Public Use
  Company Number: 406460

PATIENT
  Age: 52 Year
  Sex: Female

DRUGS (2)
  1. PEGASYS [Suspect]
     Indication: DRUG USE FOR UNKNOWN INDICATION
     Dosage: OTHER
     Dates: start: 20050429, end: 20050527
  2. COPEGUS [Suspect]
     Indication: DRUG USE FOR UNKNOWN INDICATION
     Dosage: ORAL
     Route: 048
     Dates: start: 20050429, end: 20050527

REACTIONS (11)
  - BLOOD CHOLESTEROL INCREASED [None]
  - BRONCHITIS [None]
  - CRYING [None]
  - DEPRESSION [None]
  - HYPERGLYCAEMIA [None]
  - HYPERHIDROSIS [None]
  - INFUSION [None]
  - INFUSION SITE INFECTION [None]
  - NAUSEA [None]
  - PRURITUS [None]
  - PSORIASIS [None]
